FAERS Safety Report 8920087 (Version 4)
Quarter: 2013Q1

REPORT INFORMATION
  Report Type: Report from Study
  Country: GB (occurrence: GB)
  Receive Date: 20121121
  Receipt Date: 20130111
  Transmission Date: 20140127
  Serious: Yes (Death, Hospitalization)
  Sender: FDA-Public Use
  Company Number: GB-BRISTOL-MYERS SQUIBB COMPANY-17115619

PATIENT
  Age: 69 Year
  Sex: Male
  Weight: 66 kg

DRUGS (4)
  1. IPILIMUMAB [Suspect]
     Indication: SMALL CELL LUNG CANCER EXTENSIVE STAGE
     Dosage: RECENT DOSE ON 12OCT2012
     Dates: start: 20120503, end: 20121012
  2. CARBOPLATIN [Suspect]
     Indication: SMALL CELL LUNG CANCER EXTENSIVE STAGE
     Dosage: RECENT DOSE ON 06JUL2012
     Dates: start: 20120321, end: 20120706
  3. ETOPOSIDE [Suspect]
     Indication: SMALL CELL LUNG CANCER EXTENSIVE STAGE
     Dosage: RECENT DOSE ON 6JUL2012
     Route: 048
     Dates: start: 20120321, end: 20120706
  4. DEXAMETHASONE [Suspect]
     Dosage: 27AUG-24INTERUPTED6MG?30OCT12:4-2MG
     Route: 048
     Dates: start: 20120827, end: 20121110

REACTIONS (3)
  - Respiratory tract infection [Fatal]
  - Gastrointestinal haemorrhage [Fatal]
  - Sepsis [Fatal]
